FAERS Safety Report 16354324 (Version 2)
Quarter: 2019Q2

REPORT INFORMATION
  Report Type: Spontaneous
  Country: US (occurrence: US)
  Receive Date: 20190524
  Receipt Date: 20190531
  Transmission Date: 20190711
  Serious: Yes (Hospitalization, Other)
  Sender: FDA-Public Use
  Company Number: US-BAXTER-2019BAX010439

PATIENT
  Sex: Male

DRUGS (1)
  1. DIANEAL LOW CALCIUM PERITONEAL DIALYSIS SOLUTION WITH DEXTROSE [Suspect]
     Active Substance: CALCIUM CHLORIDE\DEXTROSE\MAGNESIUM CHLORIDE\SODIUM CHLORIDE\SODIUM LACTATE
     Indication: PERITONEAL DIALYSIS
     Dosage: 2 BAGS
     Route: 033

REACTIONS (6)
  - Fall [Unknown]
  - Throat cancer [Unknown]
  - Vomiting [Unknown]
  - Gait disturbance [Unknown]
  - Head injury [Unknown]
  - Abdominal distension [Unknown]

NARRATIVE: CASE EVENT DATE: 20190522
